FAERS Safety Report 9756635 (Version 1)
Quarter: 2013Q4

REPORT INFORMATION
  Report Type: Spontaneous
  Country: FR (occurrence: FR)
  Receive Date: 20131213
  Receipt Date: 20131213
  Transmission Date: 20140711
  Serious: Yes (Other)
  Sender: FDA-Public Use
  Company Number: FR-ABBVIE-13P-056-1179452-00

PATIENT
  Age: 66 Year
  Sex: Female

DRUGS (6)
  1. ZECLAR [Suspect]
     Indication: MYCOBACTERIAL INFECTION
     Route: 048
     Dates: start: 20130925, end: 20131003
  2. RIFADINE [Suspect]
     Indication: MYCOBACTERIAL INFECTION
     Route: 048
     Dates: start: 20130925, end: 20131003
  3. RIFADINE [Suspect]
     Route: 048
  4. DOXYCYCLINE [Suspect]
     Indication: MYCOBACTERIAL INFECTION
     Route: 048
     Dates: start: 20130925, end: 20131003
  5. METHOTREXATE [Concomitant]
     Indication: RHEUMATOID ARTHRITIS
     Route: 048
  6. ROACTEMRA [Concomitant]
     Indication: RHEUMATOID ARTHRITIS
     Route: 048
     Dates: start: 201307

REACTIONS (5)
  - Hyperhidrosis [Recovered/Resolved]
  - Chromaturia [Recovered/Resolved]
  - Abdominal pain [Recovered/Resolved]
  - Diarrhoea [Recovered/Resolved]
  - Gastrooesophageal reflux disease [Recovered/Resolved]
